FAERS Safety Report 11335397 (Version 1)
Quarter: 2015Q3

REPORT INFORMATION
  Report Type: Spontaneous
  Country: US (occurrence: None)
  Receive Date: 20150731
  Receipt Date: 20150731
  Transmission Date: 20151125
  Serious: Yes (Other)
  Sender: FDA-Public Use
  Company Number: None

PATIENT
  Age: 54 Year
  Sex: Female

DRUGS (1)
  1. HYDROCODONE/HOMATROPINE [Suspect]
     Active Substance: HOMATROPINE METHYLBROMIDE\HYDROCODONE BITARTRATE
     Indication: COUGH
     Dosage: 1 TEASPOON EVERY 4 TO 6 H
     Route: 048
     Dates: start: 20150727, end: 20150728

REACTIONS (5)
  - Hyperhidrosis [None]
  - Vomiting [None]
  - Nausea [None]
  - Abdominal discomfort [None]
  - Asthenia [None]

NARRATIVE: CASE EVENT DATE: 20150727
